FAERS Safety Report 15440993 (Version 1)
Quarter: 2018Q3

REPORT INFORMATION
  Report Type: Spontaneous
  Country: IQ (occurrence: IQ)
  Receive Date: 20180928
  Receipt Date: 20180928
  Transmission Date: 20181010
  Serious: Yes (Death, Hospitalization, Other)
  Sender: FDA-Public Use
  Company Number: IQ-SA-2018SA265542

PATIENT
  Sex: Male

DRUGS (1)
  1. ALGLUCOSIDASE ALFA [Suspect]
     Active Substance: ALGLUCOSIDASE ALFA
     Indication: GLYCOGEN STORAGE DISEASE TYPE II
     Dosage: 200 MG/KG
     Route: 041

REACTIONS (2)
  - Pneumonia [Fatal]
  - Respiratory failure [Fatal]
